FAERS Safety Report 7618569-2 (Version None)
Quarter: 2011Q3

REPORT INFORMATION
  Report Type: 
  Country: None (occurrence: None)
  Receive Date: 20110718
  Receipt Date: 20110713
  Transmission Date: 20111222
  Serious: Yes (Other)
  Sender: FDA-Public Use
  Company Number: US-PFIZER INC-2011159247

PATIENT
  Sex: Male
  Weight: 70.295 kg

DRUGS (8)
  1. OMEPRAZOLE [Concomitant]
     Dosage: 10 MG, 1X/DAY
  2. SUTENT [Suspect]
     Indication: RENAL CELL CARCINOMA
     Dosage: 25 MG, 1X/DAY
     Dates: start: 20100101
  3. METOPROLOL [Concomitant]
     Dosage: 12.5 MG, 2X/DAY
  4. CODAMINE [Concomitant]
     Dosage: UNK
  5. ZEMPLAR [Concomitant]
     Dosage: 2 MG, 1X/DAY
  6. CITALOPRAM [Concomitant]
     Dosage: 20 MG, UNK
  7. AMLODIPINE [Concomitant]
     Dosage: 5 MG, 1X/DAY
  8. LEVOTHYROXINE [Concomitant]
     Dosage: 150 MG, 1X/DAY

REACTIONS (1)
  - PNEUMONIA [None]
